FAERS Safety Report 23570550 (Version 2)
Quarter: 2024Q1

REPORT INFORMATION
  Report Type: Report from Study
  Country: BR (occurrence: BR)
  Receive Date: 20240227
  Receipt Date: 20240306
  Transmission Date: 20240409
  Serious: Yes (Other)
  Sender: FDA-Public Use
  Company Number: BR-UCBSA-2024009442

PATIENT
  Age: 60 Year
  Sex: Female
  Weight: 68 kg

DRUGS (4)
  1. CERTOLIZUMAB PEGOL [Suspect]
     Active Substance: CERTOLIZUMAB PEGOL
     Indication: Ankylosing spondylitis
     Dosage: 400 MILLIGRAM, EV 30 DAYS
     Route: 058
     Dates: end: 202303
  2. CERTOLIZUMAB PEGOL [Suspect]
     Active Substance: CERTOLIZUMAB PEGOL
     Dosage: 02X APPLICATIONS EVERY 15 DAYS - INDUCTION
     Route: 058
     Dates: start: 20240226
  3. ESTRADIOL [Concomitant]
     Active Substance: ESTRADIOL
     Indication: Hormone level abnormal
     Dosage: 1 DOSAGE FORM, ONCE DAILY (QD)
     Route: 048
  4. UTROGESTAN [Concomitant]
     Active Substance: PROGESTERONE
     Indication: Hormone level abnormal
     Dosage: 1 DOSAGE FORM, ONCE DAILY (QD)
     Route: 048

REACTIONS (13)
  - Ankylosing spondylitis [Not Recovered/Not Resolved]
  - Migraine [Not Recovered/Not Resolved]
  - Influenza [Not Recovered/Not Resolved]
  - Oropharyngeal pain [Not Recovered/Not Resolved]
  - Productive cough [Not Recovered/Not Resolved]
  - Nasal congestion [Not Recovered/Not Resolved]
  - Arthralgia [Not Recovered/Not Resolved]
  - Pain [Not Recovered/Not Resolved]
  - Back pain [Not Recovered/Not Resolved]
  - Neck pain [Not Recovered/Not Resolved]
  - Gait disturbance [Not Recovered/Not Resolved]
  - Product distribution issue [Unknown]
  - Therapy interrupted [Unknown]

NARRATIVE: CASE EVENT DATE: 20230301
